FAERS Safety Report 24182621 (Version 1)
Quarter: 2024Q3

REPORT INFORMATION
  Report Type: Report from Study
  Country: CA (occurrence: CA)
  Receive Date: 20240807
  Receipt Date: 20240807
  Transmission Date: 20241017
  Serious: Yes (Other)
  Sender: BIOCON
  Company Number: CA-BIOCON BIOLOGICS LIMITED-BBL2024005616

PATIENT

DRUGS (2)
  1. HULIO [Interacting]
     Active Substance: ADALIMUMAB-FKJP
     Indication: Psoriatic arthropathy
     Dosage: 40 MG, BIWEEKLY
     Route: 058
     Dates: start: 20240704
  2. CLONAZEPAM [Interacting]
     Active Substance: CLONAZEPAM
     Indication: Product used for unknown indication
     Dosage: UNK
     Route: 065

REACTIONS (15)
  - Monoplegia [Unknown]
  - Pain [Unknown]
  - Gait inability [Unknown]
  - Crying [Unknown]
  - Arthralgia [Unknown]
  - Suicidal ideation [Unknown]
  - Osteoarthritis [Unknown]
  - Post-traumatic stress disorder [Unknown]
  - Drug interaction [Unknown]
  - Fear [Unknown]
  - Depressed mood [Unknown]
  - Victim of sexual abuse [Unknown]
  - Illness [Unknown]
  - Product dose omission issue [Unknown]
  - Treatment noncompliance [Unknown]
